FAERS Safety Report 12172211 (Version 4)
Quarter: 2016Q3

REPORT INFORMATION
  Report Type: Spontaneous
  Country: JP (occurrence: JP)
  Receive Date: 20160311
  Receipt Date: 20160708
  Transmission Date: 20161109
  Serious: Yes (Hospitalization, Other)
  Sender: FDA-Public Use
  Company Number: JP-BRISTOL-MYERS SQUIBB COMPANY-BMS-2015-080599

PATIENT
  Age: 72 Year
  Sex: Male
  Weight: 49.2 kg

DRUGS (5)
  1. ELIQUIS [Suspect]
     Active Substance: APIXABAN
     Indication: CEREBROVASCULAR ACCIDENT PROPHYLAXIS
     Dosage: 5 MG, BID
     Route: 048
     Dates: start: 20140510
  2. GLIMICRON [Concomitant]
     Active Substance: GLICLAZIDE
     Indication: PRE-EXISTING DISEASE
     Dosage: 40 MG, QD
     Route: 048
     Dates: start: 20100323, end: 20151215
  3. ACTOS [Concomitant]
     Active Substance: PIOGLITAZONE HYDROCHLORIDE
     Indication: PRE-EXISTING DISEASE
     Dosage: 30 MG, QD
     Route: 048
     Dates: start: 20100323
  4. VASOLAN                            /00014302/ [Concomitant]
     Active Substance: VERAPAMIL HYDROCHLORIDE
     Indication: ATRIAL FIBRILLATION
     Dosage: 40 MG, TID
     Route: 048
     Dates: start: 20100428
  5. DIQUAS [Concomitant]
     Active Substance: DIQUAFOSOL TETRASODIUM
     Indication: PRE-EXISTING DISEASE
     Dosage: UNK
     Route: 065
     Dates: start: 20150924, end: 20151002

REACTIONS (4)
  - Gastric ulcer haemorrhage [Unknown]
  - Pneumonia [Recovered/Resolved]
  - Shock [Unknown]
  - Transfusion [Unknown]

NARRATIVE: CASE EVENT DATE: 20151108
